FAERS Safety Report 7024911-6 (Version None)
Quarter: 2010Q4

REPORT INFORMATION
  Report Type: 
  Country: None (occurrence: None)
  Receive Date: 20101001
  Receipt Date: 20100920
  Transmission Date: 20110411
  Serious: Yes (Hospitalization, Other)
  Sender: FDA-Public Use
  Company Number: US-PFIZER INC-2010119228

PATIENT
  Sex: Female
  Weight: 77.551 kg

DRUGS (7)
  1. XANAX [Suspect]
     Indication: ANXIETY
     Dosage: 2 MG, 4X/DAY
     Route: 048
  2. XANAX [Suspect]
     Indication: BIPOLAR DISORDER
  3. DILANTIN-125 [Suspect]
     Dosage: 350 MG, 1X/DAY
     Dates: start: 20070101
  4. PRISTIQ [Concomitant]
     Indication: DEPRESSION
     Dosage: 50 MG, 1X/DAY
     Route: 048
  5. ASENAPINE [Concomitant]
     Indication: BIPOLAR DISORDER
     Dosage: 20 MG, 1X/DAY
     Route: 060
  6. WELLBUTRIN [Concomitant]
     Indication: DEPRESSION
     Dosage: 450 MG, 1X/DAY
     Route: 048
  7. WELLBUTRIN [Concomitant]
     Indication: BIPOLAR DISORDER

REACTIONS (4)
  - ANTICONVULSANT DRUG LEVEL DECREASED [None]
  - ANXIETY [None]
  - BLOOD SODIUM DECREASED [None]
  - CONVULSION [None]
